FAERS Safety Report 8282520-5 (Version None)
Quarter: 2012Q2

REPORT INFORMATION
  Report Type: 
  Country: None (occurrence: None)
  Receive Date: 20120413
  Receipt Date: 20120403
  Transmission Date: 20120825
  Serious: Yes (Death, Life-Threatening, Hospitalization, Other)
  Sender: FDA-Public Use
  Company Number: MX-SANOFI-AVENTIS-2012SA018199

PATIENT
  Age: 70 Year
  Sex: Male
  Weight: 70 kg

DRUGS (16)
  1. TAXOTERE [Suspect]
     Dosage: STRENGTH 20 MG
     Route: 042
     Dates: start: 20110601, end: 20110601
  2. PREDNISONE [Concomitant]
     Indication: PROSTATE CANCER
     Route: 065
  3. TAXOTERE [Suspect]
     Dosage: STRENGTH 80 MG
     Route: 042
     Dates: start: 20110601, end: 20110601
  4. ENOXAPARIN SODIUM [Suspect]
     Indication: DEEP VEIN THROMBOSIS
     Route: 058
     Dates: start: 20110301
  5. PALONOSETRON [Concomitant]
     Indication: PROSTATE CANCER
  6. PANTOPRAZOLE [Concomitant]
  7. TAXOTERE [Suspect]
     Dosage: STRENGTH 80 MG
     Route: 042
     Dates: start: 20110622, end: 20110622
  8. TAXOTERE [Suspect]
     Route: 042
     Dates: start: 20110721, end: 20110721
  9. LEXAPRO [Concomitant]
     Route: 048
     Dates: start: 20110301, end: 20110812
  10. METICORTEN [Concomitant]
     Dates: start: 20110301, end: 20110812
  11. TAXOTERE [Suspect]
     Indication: PROSTATE CANCER
     Route: 042
  12. TAXOTERE [Suspect]
     Dosage: STRENGTH 80 MG
     Route: 042
     Dates: start: 20110622, end: 20110622
  13. PREDNISONE [Concomitant]
     Route: 065
     Dates: start: 20110721, end: 20110721
  14. BICALUTAMIDE [Concomitant]
     Indication: PROSTATE CANCER
  15. HYZAAR [Concomitant]
     Dosage: DISCONTINUED ONE WEEK AGO
  16. GOSERELIN [Concomitant]

REACTIONS (27)
  - MELAENA [None]
  - GASTROINTESTINAL HYPOMOTILITY [None]
  - ABDOMINAL PAIN [None]
  - SEPTIC SHOCK [None]
  - CATHETER SITE PHLEBITIS [None]
  - HYPOCALCAEMIA [None]
  - DIVERTICULUM INTESTINAL [None]
  - INFECTIOUS PERITONITIS [None]
  - RESPIRATORY ACIDOSIS [None]
  - HYPOVENTILATION [None]
  - HYPOTENSION [None]
  - PLEURAL EFFUSION [None]
  - THROMBOPHLEBITIS [None]
  - ELECTROLYTE IMBALANCE [None]
  - WAIST CIRCUMFERENCE INCREASED [None]
  - DEVICE RELATED INFECTION [None]
  - PNEUMONITIS [None]
  - OEDEMA [None]
  - DYSPNOEA [None]
  - DEPRESSED LEVEL OF CONSCIOUSNESS [None]
  - HYPERKALAEMIA [None]
  - HAEMORRHAGIC ASCITES [None]
  - HYPERPHOSPHATAEMIA [None]
  - COAGULATION TIME PROLONGED [None]
  - INTESTINAL PERFORATION [None]
  - DISSEMINATED INTRAVASCULAR COAGULATION [None]
  - HAEMATEMESIS [None]
